FAERS Safety Report 9353252 (Version 2)
Quarter: 2013Q3

REPORT INFORMATION
  Report Type: Spontaneous
  Country: US (occurrence: US)
  Receive Date: 20130618
  Receipt Date: 20130904
  Transmission Date: 20140515
  Serious: No
  Sender: FDA-Public Use
  Company Number: US-PFIZER INC-2013181487

PATIENT
  Age: 40 Year
  Sex: Female

DRUGS (7)
  1. ZOLOFT [Suspect]
     Dosage: UNK
  2. LEVOTHYROXINE SODIUM [Suspect]
     Dosage: UNK
  3. ZOLPIDEM TARTRATE [Suspect]
     Dosage: UNK
  4. GABAPENTIN [Suspect]
     Dosage: UNK
  5. TRAMADOL HCL [Suspect]
     Dosage: UNK
  6. IBUPROFEN [Suspect]
     Dosage: UNK
  7. HYDROCHLOROTHIAZIDE [Suspect]
     Dosage: UNK

REACTIONS (1)
  - Drug hypersensitivity [Unknown]
